FAERS Safety Report 11196693 (Version 5)
Quarter: 2017Q3

REPORT INFORMATION
  Report Type: Spontaneous
  Country: US (occurrence: US)
  Receive Date: 20150617
  Receipt Date: 20170718
  Transmission Date: 20171127
  Serious: Yes (Other)
  Sender: FDA-Public Use
  Company Number: US-PFIZER INC-2015200763

PATIENT
  Age: 73 Year
  Sex: Female
  Weight: 70.3 kg

DRUGS (23)
  1. HYDROCODONE [Concomitant]
     Active Substance: HYDROCODONE
     Indication: MUSCULOSKELETAL DISCOMFORT
  2. CETIRIZINE [Concomitant]
     Active Substance: CETIRIZINE HYDROCHLORIDE
     Indication: HYPERSENSITIVITY
     Dosage: 10 MG, UNK
  3. MYRBETRIQ [Concomitant]
     Active Substance: MIRABEGRON
     Dosage: 25 MG, DAILY [ROUTE EVERY DAY SWALLOWING WHOLE WITH WATER.DO NOT CRUSH,CHEW AND/OR DIVIDE/ TAKING AS
     Route: 048
     Dates: start: 20160701
  4. PHENERGAN [Concomitant]
     Active Substance: PROMETHAZINE HYDROCHLORIDE
     Dosage: 25 MG, 1X/DAY[EVERY DAY AT BEDTIME/TAKING AS DIRECTED]
     Route: 048
     Dates: start: 20100629
  5. AMLODIPINE BESYLATE. [Concomitant]
     Active Substance: AMLODIPINE BESYLATE
     Dosage: 2.5 MG, 1X/DAY [TAKING AS DIRECTED]
     Route: 048
     Dates: start: 20160822
  6. VITAMIN C-ECHINACEA [Concomitant]
     Dosage: 500 MG, UNK [TAKING AS DIRECTED]
     Dates: start: 20080124
  7. LYRICA [Suspect]
     Active Substance: PREGABALIN
     Indication: NEURALGIA
     Dosage: 75 MG, 3X/DAY
     Route: 048
  8. BENAZEPRIL HYDROCHLORIDE. [Concomitant]
     Active Substance: BENAZEPRIL HYDROCHLORIDE
     Indication: BLOOD PRESSURE ABNORMAL
     Dosage: 20 MG, 1X/DAY
  9. CETIRIZINE [Concomitant]
     Active Substance: CETIRIZINE HYDROCHLORIDE
     Dosage: 10 MG, 1X/DAY [TAKING AS DIRECTED]
     Route: 048
     Dates: start: 20160602
  10. AMLODIPINE [Concomitant]
     Active Substance: AMLODIPINE BESYLATE
     Indication: BLOOD PRESSURE ABNORMAL
     Dosage: 2.5 MG, 1X/DAY
  11. OSTEO BI-FLEX [Concomitant]
     Active Substance: CHONDROITIN SULFATE A\GLUCOSAMINE
     Indication: ARTHROPATHY
     Dosage: UNK
  12. BENAZEPRIL [Concomitant]
     Active Substance: BENAZEPRIL HYDROCHLORIDE
     Indication: HYPERTENSION
     Dosage: 20 MG, 1X/DAY [TAKING AS DIRECTED]
     Route: 048
     Dates: start: 20160822
  13. CLOPIDOGREL [Concomitant]
     Active Substance: CLOPIDOGREL BISULFATE
     Dosage: 75 MG, 1X/DAY[TAKING AS DIRECTED]
     Route: 048
     Dates: start: 20160912
  14. LYRICA [Suspect]
     Active Substance: PREGABALIN
     Indication: POST HERPETIC NEURALGIA
     Dosage: 75 MG, 3X/DAY
  15. HYDROCODONE [Concomitant]
     Active Substance: HYDROCODONE
     Indication: BACK DISORDER
     Dosage: 10/325, 2X/DAY
  16. EQUATE MATURE ADULTS 50+ MULTIVITAMIN [Concomitant]
     Dosage: UNK, 1X/DAY
  17. LYRICA [Suspect]
     Active Substance: PREGABALIN
     Indication: BACK PAIN
     Dosage: 75 MG, 3X/DAY
     Route: 048
     Dates: start: 20170629
  18. LYRICA [Suspect]
     Active Substance: PREGABALIN
     Indication: NECK PAIN
     Dosage: 75 MG, 3X/DAY
     Route: 048
     Dates: start: 20170710
  19. PLAVIX [Concomitant]
     Active Substance: CLOPIDOGREL BISULFATE
     Indication: VEIN DISORDER
     Dosage: 75 MG, 1X/DAY
  20. FLUTICASONE. [Concomitant]
     Active Substance: FLUTICASONE
     Dosage: UNK, 2X/DAY [USE ONE TO TWO SPRAY(S) IN EACH NOSTRIL,TAKING AS DIRECTED]
     Route: 045
     Dates: start: 20170309
  21. TYLENOL EXTRA STRENGTH [Concomitant]
     Active Substance: ACETAMINOPHEN
     Dosage: UNK, AS NEEDED  [1-2 PO UP TO 4X/DAY/ MAX 6 TABS/DAY ON REGULAR BASIS/ TAKING AS DIRECTED]
     Route: 048
     Dates: start: 20150910
  22. CIPRO [Concomitant]
     Active Substance: CIPROFLOXACIN HYDROCHLORIDE
     Dosage: 250 MG, 2X/DAY [EVERY 12 HOURS,TAKING AS DIRECTED]
     Route: 048
     Dates: start: 20160613
  23. NORCO [Concomitant]
     Active Substance: ACETAMINOPHEN\HYDROCODONE BITARTRATE
     Indication: PAIN
     Dosage: UNK, AS NEEDED  [HYDROCODONE BITARTRATE 10 MG, PARACETAMOL 325 MG (EVERY 12 HOURS AS NEEDED/ PRN USE
     Route: 048
     Dates: start: 20170519

REACTIONS (4)
  - Eye swelling [Unknown]
  - Eye disorder [Not Recovered/Not Resolved]
  - Ophthalmic herpes simplex [Recovering/Resolving]
  - Visual impairment [Not Recovered/Not Resolved]

NARRATIVE: CASE EVENT DATE: 20161023
